FAERS Safety Report 4300781-1 (Version None)
Quarter: 2004Q1

REPORT INFORMATION
  Report Type: 
  Country: None (occurrence: None)
  Receive Date: 20040218
  Receipt Date: 20031105
  Transmission Date: 20041129
  Serious: No
  Sender: FDA-Public Use
  Company Number: 2003-07-0619

PATIENT
  Age: 47 Year
  Sex: Male
  Weight: 74.8435 kg

DRUGS (7)
  1. PEG-INTRON [Suspect]
     Indication: HEPATITIS C
     Dosage: 135 MCG QW SUBCUTANEOUS
     Route: 058
     Dates: start: 20020201
  2. REBETOL [Suspect]
     Indication: HEPATITIS C
     Dosage: 1200 MG QD ORAL; 800 MG QD ORAL
     Route: 048
     Dates: start: 20020101
  3. PRILOSEC [Concomitant]
  4. RYTHMOL [Concomitant]
  5. ATIVAN [Concomitant]
  6. DARVOCET-N 100 [Concomitant]
  7. MIRALAX [Concomitant]

REACTIONS (1)
  - THERAPEUTIC RESPONSE DECREASED [None]
